FAERS Safety Report 6702576-8 (Version None)
Quarter: 2010Q2

REPORT INFORMATION
  Report Type: 
  Country: None (occurrence: None)
  Receive Date: 20100429
  Receipt Date: 20100421
  Transmission Date: 20101027
  Serious: Yes (Death)
  Sender: FDA-Public Use
  Company Number: NL-BAXTER-2010BH010679

PATIENT
  Age: 38 Year
  Sex: Female
  Weight: 45 kg

DRUGS (8)
  1. METRONIDAZOLE [Suspect]
     Indication: OSTEOMYELITIS
     Route: 042
  2. METRONIDAZOLE [Suspect]
     Indication: OFF LABEL USE
     Route: 042
  3. METRONIDAZOLE [Suspect]
     Route: 042
  4. METRONIDAZOLE [Suspect]
     Route: 042
  5. TEICOPLANIN [Concomitant]
     Indication: INFECTION
     Route: 065
  6. SULFAMETHOXAZOLE AND TRIMETHOPRIM [Concomitant]
     Indication: INFECTION
     Route: 065
  7. BACLOFEN [Concomitant]
     Indication: PAIN
     Route: 065
  8. OMEPRAZOLE [Concomitant]
     Indication: DYSPEPSIA
     Route: 065

REACTIONS (2)
  - MEDICATION ERROR [None]
  - TOXIC ENCEPHALOPATHY [None]
